FAERS Safety Report 8490227-4 (Version None)
Quarter: 2012Q3

REPORT INFORMATION
  Report Type: 
  Country: None (occurrence: None)
  Receive Date: 20120705
  Receipt Date: 20111110
  Transmission Date: 20120928
  Serious: No
  Sender: FDA-Public Use
  Company Number: US-BAUSCH-2011BL008159

PATIENT
  Sex: Female

DRUGS (3)
  1. OPCON-A [Suspect]
     Indication: VISION BLURRED
     Route: 047
     Dates: start: 20110101
  2. REFRESH [Concomitant]
  3. OPCON-A [Suspect]
     Indication: EYE IRRITATION
     Route: 047
     Dates: start: 20110101

REACTIONS (1)
  - EYE IRRITATION [None]
